FAERS Safety Report 8961579 (Version 5)
Quarter: 2015Q3

REPORT INFORMATION
  Report Type: Spontaneous
  Country: US (occurrence: US)
  Receive Date: 20121213
  Receipt Date: 20150831
  Transmission Date: 20151125
  Serious: Yes (Hospitalization, Other)
  Sender: FDA-Public Use
  Company Number: US-BAYER-2012-128046

PATIENT
  Age: 21 Year
  Sex: Female
  Weight: 87.75 kg

DRUGS (20)
  1. YAZ [Suspect]
     Active Substance: DROSPIRENONE\ETHINYL ESTRADIOL
     Indication: ACNE
  2. LIDOCAINE. [Concomitant]
     Active Substance: LIDOCAINE
  3. ASCORBIC ACID. [Concomitant]
     Active Substance: ASCORBIC ACID
  4. AMOXICILLIN. [Concomitant]
     Active Substance: AMOXICILLIN
     Dosage: 500 MG, TID
     Route: 048
  5. PHENERGAN [Concomitant]
     Active Substance: PROMETHAZINE HYDROCHLORIDE
     Dosage: UNK
     Dates: start: 200810
  6. LASIX [Concomitant]
     Active Substance: FUROSEMIDE
  7. EPINEPHRINE. [Concomitant]
     Active Substance: EPINEPHRINE
  8. FLEXON [Concomitant]
     Active Substance: ACETAMINOPHEN\IBUPROFEN
  9. PHENYTOIN. [Concomitant]
     Active Substance: PHENYTOIN
  10. DUAC [Concomitant]
     Active Substance: BENZOYL PEROXIDE\CLINDAMYCIN PHOSPHATE
     Indication: ACNE
     Dosage: UNK
     Dates: start: 200901
  11. MEDICIDIN-D [Concomitant]
     Dosage: 1 PACK TID
  12. YAZ [Suspect]
     Active Substance: DROSPIRENONE\ETHINYL ESTRADIOL
     Indication: SKIN DISORDER
     Dosage: UNK
     Route: 048
     Dates: start: 20080715, end: 20100128
  13. KEPPRA [Concomitant]
     Active Substance: LEVETIRACETAM
  14. ATROPINE. [Concomitant]
     Active Substance: ATROPINE
  15. DILANTIN [Concomitant]
     Active Substance: PHENYTOIN
     Indication: SEIZURE
     Dosage: UNK
     Dates: start: 2010
  16. MINOCYCLINE [Concomitant]
     Active Substance: MINOCYCLINE\MINOCYCLINE HYDROCHLORIDE
  17. SINGULAIR [Concomitant]
     Active Substance: MONTELUKAST SODIUM
     Dosage: UNK
     Dates: start: 199812
  18. IBUPROFEN. [Concomitant]
     Active Substance: IBUPROFEN
     Indication: PAIN
     Dosage: UNK UNK, PRN
  19. IBUPROFEN. [Concomitant]
     Active Substance: IBUPROFEN
     Indication: INFLAMMATION
  20. CHLORPHENIRAMINE MALEATE AND PSEUDOEPHEDRINE HYDROCHLORIDE [Concomitant]
     Active Substance: CHLORPHENIRAMINE MALEATE\PSEUDOEPHEDRINE HYDROCHLORIDE

REACTIONS (28)
  - Pulmonary embolism [Recovered/Resolved]
  - Anxiety [None]
  - Thrombophlebitis superficial [Recovered/Resolved]
  - Pulse absent [None]
  - Cardiac arrest [None]
  - Jugular vein thrombosis [Recovered/Resolved]
  - Deep vein thrombosis [Recovered/Resolved]
  - Cerebral ischaemia [None]
  - Unresponsive to stimuli [None]
  - Cerebrovascular accident [Not Recovered/Not Resolved]
  - Apallic syndrome [None]
  - Product use issue [None]
  - Cerebral thrombosis [None]
  - Respiratory arrest [None]
  - Abasia [None]
  - Deep vein thrombosis [Recovered/Resolved]
  - Injury [Recovered/Resolved]
  - Mobility decreased [None]
  - Atrial thrombosis [None]
  - Pain [Recovered/Resolved]
  - Pupillary reflex impaired [None]
  - Brain injury [None]
  - Cognitive disorder [None]
  - Emotional distress [None]
  - Depression [None]
  - Apnoeic attack [None]
  - Brain hypoxia [None]
  - Psychological trauma [None]

NARRATIVE: CASE EVENT DATE: 20100128
